FAERS Safety Report 6185926-3 (Version None)
Quarter: 2009Q2

REPORT INFORMATION
  Report Type: 
  Country: None (occurrence: None)
  Receive Date: 20090511
  Receipt Date: 20090427
  Transmission Date: 20091009
  Serious: Yes (Other)
  Sender: FDA-Public Use
  Company Number: US-PFIZER INC-2008002028

PATIENT
  Age: 50 Year
  Sex: Male

DRUGS (4)
  1. CHANTIX [Suspect]
  2. SPIRIVA [Interacting]
     Route: 055
  3. ADVAIR HFA [Interacting]
     Route: 055
  4. XOPENEX [Interacting]
     Route: 055

REACTIONS (14)
  - BRAIN INJURY [None]
  - BRONCHITIS [None]
  - BRONCHOSTENOSIS [None]
  - DRUG INEFFECTIVE [None]
  - DRUG INTERACTION [None]
  - HEADACHE [None]
  - HYPERSENSITIVITY [None]
  - NAUSEA [None]
  - NIGHTMARE [None]
  - OXYGEN CONSUMPTION [None]
  - PARANOIA [None]
  - PERSONALITY CHANGE [None]
  - STRESS [None]
  - WEIGHT INCREASED [None]
